FAERS Safety Report 15550982 (Version 1)
Quarter: 2018Q4

REPORT INFORMATION
  Report Type: Spontaneous
  Country: MX (occurrence: MX)
  Receive Date: 20181025
  Receipt Date: 20181025
  Transmission Date: 20190205
  Serious: Yes (Hospitalization, Other)
  Sender: FDA-Public Use
  Company Number: MX-JNJFOC-20181035314

PATIENT
  Age: 84 Year
  Sex: Male

DRUGS (1)
  1. XARELTO [Suspect]
     Active Substance: RIVAROXABAN
     Indication: PRODUCT USED FOR UNKNOWN INDICATION
     Route: 048
     Dates: start: 20160906

REACTIONS (5)
  - Urinary tract infection [Unknown]
  - Prosopagnosia [Unknown]
  - Diabetes mellitus [Unknown]
  - Pyrexia [Unknown]
  - Speech disorder [Unknown]

NARRATIVE: CASE EVENT DATE: 201810
